FAERS Safety Report 9030214 (Version 1)
Quarter: 2013Q1

REPORT INFORMATION
  Report Type: Spontaneous
  Country: US (occurrence: US)
  Receive Date: 20130125
  Receipt Date: 20130125
  Transmission Date: 20140127
  Serious: No
  Sender: FDA-Public Use
  Company Number: US-009507513-1301USA008639

PATIENT
  Age: 65 Year
  Sex: Female

DRUGS (4)
  1. AZASITE [Suspect]
     Indication: EYE INFECTION
     Dosage: UNK
     Route: 047
     Dates: start: 20130115
  2. AZASITE [Suspect]
     Indication: DRY EYE
  3. NORVASC [Concomitant]
  4. BYSTOLIC [Concomitant]

REACTIONS (1)
  - Eye irritation [Unknown]
